FAERS Safety Report 4752527-0 (Version None)
Quarter: 2005Q3

REPORT INFORMATION
  Report Type: 
  Country: None (occurrence: None)
  Receive Date: 20050825
  Receipt Date: 20050815
  Transmission Date: 20060218
  Serious: Yes (Other)
  Sender: FDA-Public Use
  Company Number: JP-BRISTOL-MYERS SQUIBB COMPANY-13078167

PATIENT
  Age: 62 Year
  Sex: Male

DRUGS (4)
  1. CYCLOPHOSPHAMIDE [Suspect]
     Indication: NON-HODGKIN'S LYMPHOMA
  2. VINCRISTINE [Suspect]
     Indication: NON-HODGKIN'S LYMPHOMA
  3. DOXORUBICIN [Suspect]
     Indication: NON-HODGKIN'S LYMPHOMA
  4. DEXAMETHASONE [Suspect]
     Indication: NON-HODGKIN'S LYMPHOMA

REACTIONS (7)
  - ASCITES [None]
  - CYTOMEGALOVIRUS COLITIS [None]
  - HYPOVOLAEMIA [None]
  - LEUKOPENIA [None]
  - PLEURAL EFFUSION [None]
  - PNEUMONIA [None]
  - SEPTIC SHOCK [None]
